FAERS Safety Report 7774361-X (Version None)
Quarter: 2011Q3

REPORT INFORMATION
  Report Type: 
  Country: None (occurrence: None)
  Receive Date: 20110921
  Receipt Date: 20110913
  Transmission Date: 20111222
  Serious: Yes (Death)
  Sender: FDA-Public Use
  Company Number: GER/GER/11/0021147

PATIENT
  Sex: Male
  Weight: 85 kg

DRUGS (2)
  1. ZOPICLONE [Concomitant]
  2. CITALOPRAM HYDROBROMIDE [Suspect]
     Indication: DEPRESSION
     Dosage: 10 MG, 1 IN 1 D, ORAL
     Route: 048
     Dates: start: 20110307, end: 20110309

REACTIONS (3)
  - COMPLETED SUICIDE [None]
  - RESTLESSNESS [None]
  - ABDOMINAL DISCOMFORT [None]
